FAERS Safety Report 7341484-9 (Version None)
Quarter: 2011Q1

REPORT INFORMATION
  Report Type: 
  Country: None (occurrence: None)
  Receive Date: 20110309
  Receipt Date: 20110304
  Transmission Date: 20110831
  Serious: Yes (Hospitalization)
  Sender: FDA-Public Use
  Company Number: DE-ROCHE-759082

PATIENT
  Sex: Male
  Weight: 75 kg

DRUGS (10)
  1. RIBAVIRIN [Suspect]
     Route: 048
  2. TAMSULOSIN [Concomitant]
     Dosage: IN THE MORNING
     Route: 048
  3. RIBAVIRIN [Suspect]
     Route: 048
     Dates: start: 20100609
  4. PROGRAF [Concomitant]
     Dosage: IN THE MORNING AND IN THE EVENING
     Route: 048
  5. URSO FALK [Concomitant]
     Dosage: IN THE MORNING AND IN THE EVENING
     Route: 048
  6. PANTOZOL [Concomitant]
     Dosage: IN THE MORNING
     Route: 048
  7. METOPROLOL SUCCINATE [Concomitant]
     Dosage: 1 DF IN THE MORNING, 0.5 DF IN THE EVENING
     Route: 048
  8. ARANESP [Concomitant]
  9. PEGINTERFERON ALFA-2A [Suspect]
     Route: 058
     Dates: start: 20100609
  10. JANUVIA [Concomitant]
     Dosage: IN THE MORNING
     Route: 048

REACTIONS (2)
  - ANAEMIA [None]
  - HAEMOLYSIS [None]
